FAERS Safety Report 9509372 (Version 1)
Quarter: 2013Q1

REPORT INFORMATION
  Report Type: Spontaneous
  Country: US (occurrence: None)
  Receive Date: 20130305
  Receipt Date: 20130305
  Transmission Date: 20140127
  Serious: Yes (Hospitalization, Other)
  Sender: FDA-Public Use
  Company Number: 163-21880-12071504

PATIENT
  Age: 69 Year
  Sex: Male
  Weight: 63.5 kg

DRUGS (16)
  1. REVLIMID (LENALIDOMIDE) (CAPSULES) [Suspect]
     Indication: PLASMA CELL MYELOMA
     Dosage: 1 IN 1 D
     Route: 048
     Dates: start: 20101012
  2. DEXAMETHASONE (DEXAMETHASONE) [Concomitant]
  3. PREDNISONE (PREDNISONE) [Concomitant]
  4. ONDANSETRON (ONDANSETRON) [Concomitant]
  5. FOLIC ACID (FOLIC ACID) [Concomitant]
  6. BABY ASPIRIN (ACETYLSALICYLIC ACID) [Concomitant]
  7. BUSPIRONE (BUSPIRONE) [Concomitant]
  8. MORPHINE [Concomitant]
  9. ACETAMINOPHEN (PARACETAMOL) [Concomitant]
  10. IBUPROFEN (IBUPROFEN) [Concomitant]
  11. NASAL SPRAY (XYLOMETAZOLINE HYDROCHLORIDE) [Concomitant]
  12. COMBIVENT (COMBIVENT) [Concomitant]
  13. VITAMIN C [Concomitant]
  14. VITAMIN B-12 (CYANOCOBALAMIN) [Concomitant]
  15. VITAMIN E (TOCOPHEROL) [Concomitant]
  16. VITAMIN D (ERGOCALCIFEROL) [Concomitant]

REACTIONS (8)
  - Pneumonia [None]
  - Constipation [None]
  - Rash [None]
  - Skin striae [None]
  - Nausea [None]
  - Fatigue [None]
  - White blood cell count decreased [None]
  - Diarrhoea [None]
